FAERS Safety Report 6197324-7 (Version None)
Quarter: 2009Q2

REPORT INFORMATION
  Report Type: 
  Country: None (occurrence: None)
  Receive Date: 20090521
  Receipt Date: 20090504
  Transmission Date: 20091009
  Serious: Yes (Hospitalization, Other)
  Sender: FDA-Public Use
  Company Number: RU-BAYER-200919756GPV

PATIENT
  Age: 37 Year
  Sex: Female

DRUGS (3)
  1. MIRENA [Suspect]
     Indication: DRUG USE FOR UNKNOWN INDICATION
     Route: 015
     Dates: start: 20080528
  2. TAXOL [Concomitant]
     Indication: CHEMOTHERAPY
     Dates: start: 20090302
  3. CARBOPLATIN [Concomitant]
     Indication: CHEMOTHERAPY
     Dates: start: 20090302

REACTIONS (7)
  - ABDOMINAL ADHESIONS [None]
  - ABDOMINAL DISTENSION [None]
  - ASCITES [None]
  - DYSPNOEA EXERTIONAL [None]
  - ENDOMETRIAL CANCER METASTATIC [None]
  - HYDROTHORAX [None]
  - UTERINE LEIOMYOMA [None]
